FAERS Safety Report 13878852 (Version 1)
Quarter: 2017Q3

REPORT INFORMATION
  Report Type: Spontaneous
  Country: US (occurrence: US)
  Receive Date: 20170817
  Receipt Date: 20170817
  Transmission Date: 20171127
  Serious: No
  Sender: FDA-Public Use
  Company Number: US-LUNDBECK-DKLU2028623

PATIENT
  Sex: Male

DRUGS (1)
  1. NORTHERA [Suspect]
     Active Substance: DROXIDOPA
     Indication: ISCHAEMIC CARDIOMYOPATHY
     Route: 065

REACTIONS (3)
  - Sinusitis [Unknown]
  - Blood glucose increased [Unknown]
  - Off label use [Unknown]
